FAERS Safety Report 5034839-9 (Version None)
Quarter: 2006Q2

REPORT INFORMATION
  Report Type: 
  Country: None (occurrence: None)
  Receive Date: 20060519
  Receipt Date: 20060405
  Transmission Date: 20061013
  Serious: No
  Sender: FDA-Public Use
  Company Number: TPA2006A00609

PATIENT
  Age: 58 Year
  Sex: Female
  Weight: 99.7913 kg

DRUGS (3)
  1. ROZEREM [Suspect]
     Indication: DEPRESSION
     Dosage: 8 MG, HS, PER ORAL
     Route: 048
     Dates: start: 20060315
  2. ROZEREM [Suspect]
     Indication: INSOMNIA
     Dosage: 8 MG, HS, PER ORAL
     Route: 048
     Dates: start: 20060315
  3. LEXAPRO(ESCITALOPRAM OXALATE) (5 MILLIGRAM) [Concomitant]

REACTIONS (1)
  - MIDDLE INSOMNIA [None]
